FAERS Safety Report 25629362 (Version 2)
Quarter: 2025Q3

REPORT INFORMATION
  Report Type: Spontaneous
  Country: GB (occurrence: GB)
  Receive Date: 20250731
  Receipt Date: 20250909
  Transmission Date: 20251020
  Serious: Yes (Hospitalization)
  Sender: MYLAN
  Company Number: GB-MYLANLABS-2025M1064310

PATIENT
  Sex: Female

DRUGS (3)
  1. CLOZARIL [Suspect]
     Active Substance: CLOZAPINE
     Indication: Schizophrenia
  2. CLOZARIL [Suspect]
     Active Substance: CLOZAPINE
     Dates: start: 20250701, end: 20250711
  3. CLOZARIL [Suspect]
     Active Substance: CLOZAPINE

REACTIONS (3)
  - Mental impairment [Unknown]
  - Off label use [Unknown]
  - Treatment noncompliance [Unknown]
